FAERS Safety Report 6674308-3 (Version None)
Quarter: 2010Q2

REPORT INFORMATION
  Report Type: 
  Country: None (occurrence: None)
  Receive Date: 20100409
  Receipt Date: 20100330
  Transmission Date: 20101027
  Serious: Yes (Other)
  Sender: FDA-Public Use
  Company Number: US-JNJFOC-20100400581

PATIENT
  Age: 5 Year
  Sex: Male
  Weight: 22.23 kg

DRUGS (4)
  1. CONCERTA [Suspect]
     Indication: ATTENTION DEFICIT/HYPERACTIVITY DISORDER
     Route: 048
  2. RITALIN [Suspect]
     Indication: ATTENTION DEFICIT/HYPERACTIVITY DISORDER
     Dosage: ONCE OR TWICE A DAY
     Route: 048
  3. BENADRYL [Concomitant]
     Indication: SLEEP DISORDER
     Route: 065
  4. MELATONIN [Concomitant]
     Indication: SLEEP DISORDER
     Route: 065

REACTIONS (4)
  - ABNORMAL BEHAVIOUR [None]
  - CONVULSION [None]
  - DECREASED APPETITE [None]
  - DRUG INEFFECTIVE [None]
